FAERS Safety Report 23963682 (Version 1)
Quarter: 2024Q2

REPORT INFORMATION
  Report Type: Spontaneous
  Country: US (occurrence: US)
  Receive Date: 20240611
  Receipt Date: 20240611
  Transmission Date: 20240716
  Serious: Yes (Other)
  Sender: FDA-Public Use
  Company Number: US-IPSEN Group, Research and Development-2024-11636

PATIENT
  Age: 58 Year
  Sex: Male

DRUGS (4)
  1. LANREOTIDE ACETATE [Suspect]
     Active Substance: LANREOTIDE ACETATE
     Indication: Product used for unknown indication
     Route: 065
  2. XERMELO [Suspect]
     Active Substance: TELOTRISTAT ETHYL
     Indication: Carcinoid syndrome
     Route: 048
     Dates: start: 20240104
  3. XERMELO [Suspect]
     Active Substance: TELOTRISTAT ETHYL
     Route: 048
  4. OXYCODONE [Concomitant]
     Active Substance: OXYCODONE\OXYCODONE HYDROCHLORIDE
     Dosage: 4-6 HOURS

REACTIONS (5)
  - Malignant neoplasm progression [Unknown]
  - Back pain [Not Recovered/Not Resolved]
  - Rash [Recovered/Resolved]
  - Insomnia [Unknown]
  - Off label use [Unknown]
